FAERS Safety Report 4616617-5 (Version None)
Quarter: 2005Q1

REPORT INFORMATION
  Report Type: 
  Country: None (occurrence: None)
  Receive Date: 20050318
  Receipt Date: 20050221
  Transmission Date: 20050727
  Serious: Yes (Death, Life-Threatening, Hospitalization)
  Sender: FDA-Public Use
  Company Number: ATO-05-0005

PATIENT
  Age: 74 Year
  Sex: Male

DRUGS (8)
  1. TRISENOX [Suspect]
     Indication: MYELODYSPLASTIC SYNDROME
     Dosage: 21 MG (0.25 M G/KG, TWICE WEEKLY) IVI
     Route: 042
     Dates: start: 20041129, end: 20041230
  2. THALIDOMIDE (THALIDOMIDE) [Suspect]
     Indication: MYELODYSPLASTIC SYNDROME
     Dosage: 100 MG (100 MG, DAILY Q HS) ORAL
     Route: 048
     Dates: start: 20041129, end: 20050105
  3. FILGRASTIM (FILGRASTIM) [Concomitant]
  4. EPOGEN [Concomitant]
  5. PYRIDOXINE (PYRIDOXINE) [Concomitant]
  6. PROPRANOLOL [Concomitant]
  7. GLIPIZIDE [Concomitant]
  8. FAMOTIDINE [Concomitant]

REACTIONS (21)
  - ASCITES [None]
  - BLOOD IRON INCREASED [None]
  - DEPRESSED LEVEL OF CONSCIOUSNESS [None]
  - ECCHYMOSIS [None]
  - HAEMATOCHEZIA [None]
  - HAEMATOCRIT DECREASED [None]
  - HAEMODIALYSIS [None]
  - HAEMOGLOBIN DECREASED [None]
  - HEART RATE INCREASED [None]
  - HEPATIC CIRRHOSIS [None]
  - HEPATORENAL SYNDROME [None]
  - MELAENA [None]
  - NEPHROPATHY TOXIC [None]
  - OEDEMA PERIPHERAL [None]
  - RENAL FAILURE ACUTE [None]
  - RENAL TUBULAR NECROSIS [None]
  - RESPIRATORY RATE INCREASED [None]
  - SKIN HAEMORRHAGE [None]
  - THROMBOCYTOPENIA [None]
  - WEIGHT INCREASED [None]
  - WHITE BLOOD CELL COUNT INCREASED [None]
